FAERS Safety Report 4662570-8 (Version None)
Quarter: 2005Q2

REPORT INFORMATION
  Report Type: 
  Country: None (occurrence: None)
  Receive Date: 20050513
  Receipt Date: 20050513
  Transmission Date: 20051028
  Serious: Yes (Hospitalization)
  Sender: FDA-Public Use
  Company Number: None

PATIENT
  Age: 44 Year
  Sex: Female
  Weight: 108.4097 kg

DRUGS (3)
  1. CIPROFLOXACIN [Suspect]
     Indication: URINARY TRACT INFECTION
     Dosage: 1 TABLET  TWICE DAILY ORAL
     Route: 048
     Dates: start: 20041106, end: 20041109
  2. TYLENOL W/ CODEINE NO. 3 [Suspect]
     Indication: URINARY TRACT INFECTION
     Dates: start: 20041106, end: 20041109
  3. TYLENOL W/ CODEINE NO. 3 [Suspect]
     Indication: URINARY TRACT PAIN
     Dates: start: 20041106, end: 20041109

REACTIONS (1)
  - STEVENS-JOHNSON SYNDROME [None]
